FAERS Safety Report 10363985 (Version 2)
Quarter: 2014Q3

REPORT INFORMATION
  Report Type: Spontaneous
  Country: DE (occurrence: DE)
  Receive Date: 20140805
  Receipt Date: 20140901
  Transmission Date: 20150326
  Serious: Yes (Other)
  Sender: FDA-Public Use
  Company Number: PHHY2014DE093609

PATIENT
  Age: 16 Year
  Sex: Female

DRUGS (2)
  1. RITALIN [Suspect]
     Active Substance: METHYLPHENIDATE HYDROCHLORIDE
     Indication: ATTENTION DEFICIT/HYPERACTIVITY DISORDER
     Dosage: UNK UKN, UNK
     Route: 048
     Dates: start: 20120916, end: 20130619
  2. PRESINOL [Suspect]
     Active Substance: METHYLDOPA
     Indication: HYPERTENSION
     Dosage: 125 MG, QID
     Route: 048

REACTIONS (2)
  - Maternal exposure during pregnancy [Unknown]
  - Pre-eclampsia [Unknown]
